FAERS Safety Report 7392410-8 (Version None)
Quarter: 2011Q2

REPORT INFORMATION
  Report Type: 
  Country: None (occurrence: None)
  Receive Date: 20110404
  Receipt Date: 20110322
  Transmission Date: 20111010
  Serious: Yes (Other)
  Sender: FDA-Public Use
  Company Number: US-ELI_LILLY_AND_COMPANY-US201103007495

PATIENT
  Sex: Male

DRUGS (2)
  1. FORTEO [Suspect]
     Indication: OSTEOPOROSIS
     Dosage: 20 UG, QD
     Dates: start: 20110101
  2. FORTEO [Suspect]
     Dosage: 20 UG, QD

REACTIONS (5)
  - FEMUR FRACTURE [None]
  - FALL [None]
  - CONSTIPATION [None]
  - HAEMORRHAGE [None]
  - SCRATCH [None]
